FAERS Safety Report 5643678-7 (Version None)
Quarter: 2008Q1

REPORT INFORMATION
  Report Type: 
  Country: None (occurrence: None)
  Receive Date: 20080228
  Receipt Date: 20080216
  Transmission Date: 20080703
  Serious: Yes (Other)
  Sender: FDA-Public Use
  Company Number: US-PFIZER INC-2008015416

PATIENT
  Sex: Female
  Weight: 60.3 kg

DRUGS (5)
  1. LYRICA [Suspect]
     Indication: FIBROMYALGIA
  2. GABAPENTIN [Suspect]
     Indication: FIBROMYALGIA
  3. MORPHINE [Concomitant]
  4. VIVELLE-DOT [Concomitant]
  5. ACIPHEX [Concomitant]

REACTIONS (13)
  - ABDOMINAL DISTENSION [None]
  - BRADYPHRENIA [None]
  - CHOKING [None]
  - COGNITIVE DISORDER [None]
  - DRUG INEFFECTIVE [None]
  - ERUCTATION [None]
  - EUPHORIC MOOD [None]
  - FIBROMYALGIA [None]
  - FLATULENCE [None]
  - HEADACHE [None]
  - INSOMNIA [None]
  - RESPIRATORY DISORDER [None]
  - WEIGHT INCREASED [None]
